FAERS Safety Report 9491078 (Version 3)
Quarter: 2013Q3

REPORT INFORMATION
  Report Type: Spontaneous
  Country: US (occurrence: US)
  Receive Date: 20130830
  Receipt Date: 20130918
  Transmission Date: 20140515
  Serious: Yes (Other)
  Sender: FDA-Public Use
  Company Number: US-PFIZER INC-2013249160

PATIENT
  Age: 51 Year
  Sex: Female
  Weight: 100 kg

DRUGS (9)
  1. LYRICA [Suspect]
     Indication: FIBROMYALGIA
     Dosage: 150 MG, 3X/DAY
     Route: 048
     Dates: start: 201110, end: 201308
  2. LEVOTHYROXINE [Concomitant]
     Indication: THYROID DISORDER
     Dosage: 100 UG, 1X/DAY
  3. CARVEDILOL [Concomitant]
     Dosage: 6.25 MG, 2X/DAY
  4. OXYBUTYNIN [Concomitant]
     Dosage: 5 MG, 2X/DAY
  5. HYDROCHLOROTHIAZIDE [Concomitant]
     Dosage: 12.5 MG, 2X/DAY
  6. HYDROXYZINE [Concomitant]
     Dosage: 10 MG, 1X/DAY
  7. BACLOFEN [Concomitant]
     Indication: BACK DISORDER
     Dosage: UNK
  8. SIMVASTATIN [Concomitant]
     Dosage: 20 MG, 1X/DAY
  9. WARFARIN [Concomitant]
     Dosage: 5 MG, 1X/DAY

REACTIONS (6)
  - Drug withdrawal syndrome [Recovering/Resolving]
  - Pruritus generalised [Recovering/Resolving]
  - Feeling abnormal [Unknown]
  - Lacrimation increased [Recovering/Resolving]
  - Liver function test abnormal [Unknown]
  - Paraesthesia [Unknown]
